FAERS Safety Report 17721979 (Version 1)
Quarter: 2020Q2

REPORT INFORMATION
  Report Type: Spontaneous
  Country: US (occurrence: US)
  Receive Date: 20200429
  Receipt Date: 20200429
  Transmission Date: 20200714
  Serious: No
  Sender: FDA-Public Use
  Company Number: US-ASTRAZENECA-2020SE52821

PATIENT
  Sex: Male

DRUGS (2)
  1. BYDUREON BCISE [Suspect]
     Active Substance: EXENATIDE
     Route: 058
  2. BYDUREON BCISE [Suspect]
     Active Substance: EXENATIDE
     Dosage: HE GOT LESS THAN 1/4 OF THE DOSE
     Route: 058

REACTIONS (4)
  - Injection site extravasation [Unknown]
  - Device defective [Unknown]
  - Incorrect dose administered by device [Unknown]
  - Device issue [Unknown]
